FAERS Safety Report 18679157 (Version 3)
Quarter: 2021Q1

REPORT INFORMATION
  Report Type: Spontaneous
  Country: US (occurrence: US)
  Receive Date: 20201230
  Receipt Date: 20210121
  Transmission Date: 20210419
  Serious: No
  Sender: FDA-Public Use
  Company Number: US-ASTRAZENECA-2020SF66208

PATIENT
  Age: 27971 Day
  Sex: Male
  Weight: 109.8 kg

DRUGS (5)
  1. BYDUREON BCISE [Suspect]
     Active Substance: EXENATIDE
     Indication: TYPE 2 DIABETES MELLITUS
     Route: 058
     Dates: start: 20180715
  2. METFORMIN [Concomitant]
     Active Substance: METFORMIN HYDROCHLORIDE
     Dosage: DOSE IS 2 500 MG TABLETS IN THE MORNING AND 2 500 MG TABLETS AT NIGHT
  3. LANTUS [Concomitant]
     Active Substance: INSULIN GLARGINE
     Dosage: DAILY IN THE EVENING
     Dates: start: 2019
  4. BYDUREON BCISE [Suspect]
     Active Substance: EXENATIDE
     Indication: TYPE 2 DIABETES MELLITUS
     Route: 058
     Dates: start: 201807
  5. BYDUREON BCISE [Suspect]
     Active Substance: EXENATIDE
     Indication: TYPE 2 DIABETES MELLITUS
     Route: 058
     Dates: start: 201802

REACTIONS (4)
  - Device leakage [Unknown]
  - Injection site mass [Unknown]
  - Intentional product misuse [Not Recovered/Not Resolved]
  - Device malfunction [Recovered/Resolved]

NARRATIVE: CASE EVENT DATE: 20201205
